FAERS Safety Report 18099245 (Version 2)
Quarter: 2020Q3

REPORT INFORMATION
  Report Type: Spontaneous
  Country: FR (occurrence: FR)
  Receive Date: 20200731
  Receipt Date: 20200817
  Transmission Date: 20201103
  Serious: Yes (Other)
  Sender: FDA-Public Use
  Company Number: FR-JNJFOC-20200728505

PATIENT
  Age: 38 Year
  Sex: Male

DRUGS (17)
  1. CYAMEMAZINE [Suspect]
     Active Substance: CYAMEMAZINE
     Indication: APATHY
  2. HALDOL [Suspect]
     Active Substance: HALOPERIDOL
     Indication: ABNORMAL BEHAVIOUR
  3. BIPERIDEN [Suspect]
     Active Substance: BIPERIDEN
     Dosage: 2 MG
     Route: 065
  4. CLORAZEPATE DIPOTASSIUM. [Suspect]
     Active Substance: CLORAZEPATE DIPOTASSIUM
     Indication: APATHY
  5. CLORAZEPATE DIPOTASSIUM. [Suspect]
     Active Substance: CLORAZEPATE DIPOTASSIUM
     Indication: DEREALISATION
     Dosage: 150 MG
     Route: 065
  6. TRIMIPRAMINE [Suspect]
     Active Substance: TRIMIPRAMINE
     Indication: DEREALISATION
  7. FLUVOXAMINE [Suspect]
     Active Substance: FLUVOXAMINE
     Indication: DEREALISATION
  8. FLUVOXAMINE [Suspect]
     Active Substance: FLUVOXAMINE
     Indication: APATHY
  9. CLORAZEPATE DIPOTASSIUM. [Suspect]
     Active Substance: CLORAZEPATE DIPOTASSIUM
     Indication: ABNORMAL BEHAVIOUR
  10. HALDOL [Suspect]
     Active Substance: HALOPERIDOL
     Indication: APATHY
     Dosage: 15 MG
     Route: 065
  11. TRIMIPRAMINE [Suspect]
     Active Substance: TRIMIPRAMINE
     Indication: APATHY
     Dosage: 200 MG
     Route: 065
  12. TRIMIPRAMINE [Suspect]
     Active Substance: TRIMIPRAMINE
     Indication: ABNORMAL BEHAVIOUR
  13. CYAMEMAZINE [Suspect]
     Active Substance: CYAMEMAZINE
     Indication: DEREALISATION
     Dosage: 200 MG
     Route: 065
  14. CYAMEMAZINE [Suspect]
     Active Substance: CYAMEMAZINE
     Indication: ABNORMAL BEHAVIOUR
  15. HALDOL [Suspect]
     Active Substance: HALOPERIDOL
     Indication: DEREALISATION
  16. BIPERIDEN [Suspect]
     Active Substance: BIPERIDEN
     Indication: PRODUCT USED FOR UNKNOWN INDICATION
     Dosage: 8 UNK
     Route: 065
  17. FLUVOXAMINE [Suspect]
     Active Substance: FLUVOXAMINE
     Indication: ABNORMAL BEHAVIOUR
     Route: 065

REACTIONS (1)
  - Neuroleptic malignant syndrome [Recovered/Resolved]
